FAERS Safety Report 4936952-0 (Version None)
Quarter: 2006Q1

REPORT INFORMATION
  Report Type: 
  Country: None (occurrence: None)
  Receive Date: 20060307
  Receipt Date: 20051011
  Transmission Date: 20060701
  Serious: Yes (Hospitalization)
  Sender: FDA-Public Use
  Company Number: US-MERCK-0510USA06656

PATIENT
  Age: 47 Year
  Sex: Male
  Weight: 95 kg

DRUGS (4)
  1. VIOXX [Suspect]
     Indication: ARTHRITIS
     Route: 048
     Dates: end: 20040930
  2. VIOXX [Suspect]
     Route: 048
     Dates: start: 20010201
  3. VIOXX [Suspect]
     Indication: JOINT INJURY
     Route: 048
     Dates: end: 20040930
  4. VIOXX [Suspect]
     Route: 048
     Dates: start: 20010201

REACTIONS (14)
  - ACUTE MYOCARDIAL INFARCTION [None]
  - ARTERIAL RUPTURE [None]
  - ARTHROPATHY [None]
  - CORONARY ARTERY DISEASE [None]
  - DERMATITIS CONTACT [None]
  - GASTROOESOPHAGEAL REFLUX DISEASE [None]
  - HEPATIC STEATOSIS [None]
  - HYPERLIPIDAEMIA [None]
  - HYPERSENSITIVITY [None]
  - HYPERTENSION [None]
  - MYOCARDIAL ISCHAEMIA [None]
  - PATELLOFEMORAL PAIN SYNDROME [None]
  - RENAL CYST [None]
  - ROAD TRAFFIC ACCIDENT [None]
